FAERS Safety Report 8543624-2 (Version None)
Quarter: 2012Q3

REPORT INFORMATION
  Report Type: 
  Country: None (occurrence: None)
  Receive Date: 20120727
  Receipt Date: 20120713
  Transmission Date: 20120928
  Serious: Yes (Hospitalization)
  Sender: FDA-Public Use
  Company Number: DE-MYLANLABS-2012S1014867

PATIENT
  Age: 66 Year
  Sex: Male

DRUGS (9)
  1. VALPROIC ACID [Suspect]
     Indication: STATUS EPILEPTICUS
     Route: 042
  2. HALOPERIDOL [Concomitant]
     Dosage: UP TO 5 MG/DAY
     Route: 065
  3. MIANSERIN [Concomitant]
     Dosage: 10 MG/DAY
     Route: 065
  4. LITHIUM CARBONATE [Suspect]
     Dosage: 600 MG/DAY
     Route: 065
  5. VALPROIC ACID [Suspect]
     Dosage: 1200 MG/DAY
     Route: 048
  6. ALLOPURINOL [Concomitant]
     Dosage: 150 MG/DAY
     Route: 065
  7. LORAZEPAM [Suspect]
     Indication: STATUS EPILEPTICUS
     Dosage: 4 MG/DAY
     Route: 065
  8. TAMSULOSIN HCL [Concomitant]
     Dosage: 0.4 MG/DAY
     Route: 065
  9. QUETIAPINE [Concomitant]
     Dosage: 25 MG/DAY
     Route: 065

REACTIONS (4)
  - ELECTROENCEPHALOGRAM ABNORMAL [None]
  - TREATMENT NONCOMPLIANCE [None]
  - STATUS EPILEPTICUS [None]
  - TOXIC ENCEPHALOPATHY [None]
